FAERS Safety Report 23217188 (Version 1)
Quarter: 2023Q4

REPORT INFORMATION
  Report Type: Report from Study
  Country: FR (occurrence: FR)
  Receive Date: 20231122
  Receipt Date: 20231122
  Transmission Date: 20240109
  Serious: Yes (Life-Threatening, Hospitalization)
  Sender: FDA-Public Use
  Company Number: FR-ZYMEWORKS BC INC.-2023ZW000127

PATIENT
  Age: 68 Year
  Sex: Female
  Weight: 56 kg

DRUGS (9)
  1. CAPECITABINE [Suspect]
     Active Substance: CAPECITABINE
     Indication: Adenocarcinoma gastric
     Dosage: 1000 MG/M2, QD
     Route: 048
     Dates: start: 20230428, end: 20230509
  2. CAPECITABINE [Suspect]
     Active Substance: CAPECITABINE
     Dosage: 750 MG/M2, QD
     Route: 042
     Dates: start: 20230609
  3. OXALIPLATIN [Suspect]
     Active Substance: OXALIPLATIN
     Indication: Adenocarcinoma gastric
     Dosage: 130 MG/M2, EVERY 21 DAYS
     Route: 042
     Dates: start: 20230427, end: 20230526
  4. OXALIPLATIN [Suspect]
     Active Substance: OXALIPLATIN
     Dosage: UNK
     Route: 042
     Dates: start: 20230609
  5. TISLELIZUMAB [Suspect]
     Active Substance: TISLELIZUMAB
     Indication: Adenocarcinoma gastric
     Dosage: 200 MG, EVERY 21 DAYS
     Route: 042
     Dates: start: 20230427, end: 20230427
  6. ZANIDATAMAB [Suspect]
     Active Substance: ZANIDATAMAB
     Indication: Adenocarcinoma gastric
     Dosage: 1800 MG, EVERY 21 DAYS
     Route: 042
     Dates: start: 20230427, end: 20230427
  7. ZANIDATAMAB [Suspect]
     Active Substance: ZANIDATAMAB
     Dosage: UNK
     Route: 042
     Dates: start: 20230609
  8. ELIQUIS [Concomitant]
     Active Substance: APIXABAN
     Indication: Arterial thrombosis
     Dosage: 5 MILLIGRAM, BID
     Route: 065
     Dates: start: 2018
  9. KARDEGIC [Concomitant]
     Active Substance: ASPIRIN DL-LYSINE
     Indication: Arterial thrombosis
     Dosage: 75 MILLIGRAM, QD
     Route: 065
     Dates: start: 2018

REACTIONS (3)
  - Colitis [Recovering/Resolving]
  - Vomiting [Recovered/Resolved]
  - Diarrhoea [Recovered/Resolved]

NARRATIVE: CASE EVENT DATE: 20230509
